FAERS Safety Report 17111558 (Version 1)
Quarter: 2019Q4

REPORT INFORMATION
  Report Type: Spontaneous
  Country: US (occurrence: US)
  Receive Date: 20191204
  Receipt Date: 20191204
  Transmission Date: 20200122
  Serious: No
  Sender: FDA-Public Use
  Company Number: US-ASCENT PHARMACEUTICALS, INC.-2077453

PATIENT
  Age: 68 Year
  Sex: Female

DRUGS (4)
  1. XYLITOL [Concomitant]
     Active Substance: XYLITOL
     Route: 065
  2. HYDROCODONE BITARTRATE AND ACETAMINOPHEN [Suspect]
     Active Substance: ACETAMINOPHEN\HYDROCODONE BITARTRATE
     Indication: BACK PAIN
     Route: 048
     Dates: start: 20190818
  3. LISINOPRIL. [Concomitant]
     Active Substance: LISINOPRIL
     Route: 065
  4. PEXOMOX [Concomitant]
     Route: 065

REACTIONS (3)
  - Drug ineffective [Unknown]
  - Back pain [Unknown]
  - Pruritus [Unknown]
